FAERS Safety Report 8055171-5 (Version None)
Quarter: 2012Q1

REPORT INFORMATION
  Report Type: 
  Country: None (occurrence: None)
  Receive Date: 20120119
  Receipt Date: 20120112
  Transmission Date: 20120608
  Serious: Yes (Hospitalization)
  Sender: FDA-Public Use
  Company Number: PHEH2012US001208

PATIENT
  Sex: Male

DRUGS (7)
  1. LISINOPRIL [Concomitant]
  2. LOVASTATIN [Concomitant]
  3. METFORMIN HCL [Concomitant]
  4. PANTOPRAZOLE [Concomitant]
     Dosage: 40 MG, BID
  5. GLYBURIDE [Concomitant]
  6. EXELON [Suspect]
     Dosage: 9.5 MG, PER DAY
     Route: 062
  7. AMOXICILLIN AND CLAVULANATE POTASSIUM [Concomitant]
     Dosage: 875 MG, BID

REACTIONS (9)
  - COUGH [None]
  - HYPOPHAGIA [None]
  - FAECES DISCOLOURED [None]
  - DYSPHAGIA [None]
  - HAEMATEMESIS [None]
  - PEPTIC ULCER [None]
  - WEIGHT DECREASED [None]
  - DIARRHOEA [None]
  - NAUSEA [None]
